FAERS Safety Report 7423234 (Version 2)
Quarter: 2020Q3

REPORT INFORMATION
  Report Type: Spontaneous
  Country: PT (occurrence: PT)
  Receive Date: 20100617
  Receipt Date: 20200708
  Transmission Date: 20201103
  Serious: Yes (Other)
  Sender: FDA-Public Use
  Company Number: PT-JNJFOC-20100604571

PATIENT
  Age: 26 Year
  Sex: Male

DRUGS (6)
  1. RISPERDAL CONSTA [Suspect]
     Active Substance: RISPERIDONE
     Route: 030
  2. RISPERDAL CONSTA [Suspect]
     Active Substance: RISPERIDONE
     Route: 030
  3. RISPERDAL CONSTA [Suspect]
     Active Substance: RISPERIDONE
     Route: 030
  4. RISPERDAL CONSTA [Suspect]
     Active Substance: RISPERIDONE
     Route: 030
  5. RISPERDAL CONSTA [Suspect]
     Active Substance: RISPERIDONE
     Indication: AGGRESSION
     Route: 030
  6. RISPERDAL CONSTA [Suspect]
     Active Substance: RISPERIDONE
     Indication: INTENTIONAL SELF-INJURY
     Route: 030

REACTIONS (3)
  - Pleurothotonus [Recovered/Resolved]
  - Off label use [Unknown]
  - Product use in unapproved indication [Unknown]
